FAERS Safety Report 25369703 (Version 1)
Quarter: 2025Q2

REPORT INFORMATION
  Report Type: Spontaneous
  Country: CH (occurrence: CH)
  Receive Date: 20250528
  Receipt Date: 20250528
  Transmission Date: 20250716
  Serious: Yes (Hospitalization, Other)
  Sender: BRACCO
  Company Number: None

PATIENT
  Age: 76 Year
  Sex: Male

DRUGS (29)
  1. CEFTRIAXONE [Suspect]
     Active Substance: CEFTRIAXONE
     Route: 042
     Dates: start: 20250329, end: 20250409
  2. IOMEPROL [Suspect]
     Active Substance: IOMEPROL
     Route: 042
     Dates: start: 20250406, end: 20250406
  3. METRONIDAZOLE [Suspect]
     Active Substance: METRONIDAZOLE
     Route: 042
     Dates: start: 20250407, end: 20250409
  4. METAMIZOLE [Suspect]
     Active Substance: METAMIZOLE
     Indication: Analgesic therapy
     Route: 048
     Dates: start: 202503, end: 202504
  5. ACETAMINOPHEN [Suspect]
     Active Substance: ACETAMINOPHEN
     Route: 042
     Dates: start: 20250401, end: 20250409
  6. ACETAMINOPHEN [Suspect]
     Active Substance: ACETAMINOPHEN
     Route: 048
     Dates: start: 20250406
  7. ACYCLOVIR [Concomitant]
     Active Substance: ACYCLOVIR
     Route: 042
     Dates: start: 20250329, end: 20250401
  8. FOLIC ACID [Concomitant]
     Active Substance: FOLIC ACID
     Dosage: 5 MG
     Route: 048
  9. ALLOPURINOL [Concomitant]
     Active Substance: ALLOPURINOL
     Dosage: 300 MG
     Route: 048
  10. Amlodipin viatris [Concomitant]
     Dosage: 10 MG
     Route: 048
  11. AMOXICILLIN [Concomitant]
     Active Substance: AMOXICILLIN
     Dosage: 2 G
     Route: 042
     Dates: start: 20250329, end: 20250329
  12. AMOXICILLIN [Concomitant]
     Active Substance: AMOXICILLIN
     Dosage: 2 G, QD
     Route: 042
     Dates: start: 20250402
  13. Baldrianwurzel [Concomitant]
     Dosage: PRESUMABLY ADMINISTERED ONCE, DOSAGE UNKNOWN
     Route: 048
     Dates: start: 202504, end: 202504
  14. BUTYLSCOPOLAMINE BROMIDE [Concomitant]
     Active Substance: BUTYLSCOPOLAMINE BROMIDE
     Dates: start: 202504, end: 202504
  15. CARDURA [Concomitant]
     Active Substance: DOXAZOSIN MESYLATE
     Dosage: 4 MG
     Route: 048
  16. COSOPT [Concomitant]
     Active Substance: DORZOLAMIDE HYDROCHLORIDE\TIMOLOL MALEATE
     Dosage: TIMOLOL 1 MG, DORZOLAMID 4 MG
     Route: 047
  17. LANTUS [Concomitant]
     Active Substance: INSULIN GLARGINE
     Dosage: 26 IU
     Route: 058
  18. MOVICOL [Concomitant]
     Active Substance: POLYETHYLENE GLYCOL 3350\POTASSIUM CHLORIDE\SODIUM BICARBONATE\SODIUM CHLORIDE
     Dosage: 1 DF
     Route: 048
  19. SODIUM PICOSULFATE [Concomitant]
     Active Substance: SODIUM PICOSULFATE
     Route: 048
     Dates: start: 20250330, end: 20250330
  20. SODIUM PICOSULFATE [Concomitant]
     Active Substance: SODIUM PICOSULFATE
     Dates: start: 20250402, end: 20250402
  21. NEBIVOLOL [Concomitant]
     Active Substance: NEBIVOLOL
     Dosage: 5 MG
     Route: 048
  22. OXYCODONE [Concomitant]
     Active Substance: OXYCODONE
     Route: 048
     Dates: start: 202504, end: 202504
  23. PANTOPRAZOLE SODIUM [Concomitant]
     Active Substance: PANTOPRAZOLE SODIUM
     Dosage: 20 MG
     Route: 048
  24. RITUXIMAB [Concomitant]
     Active Substance: RITUXIMAB
     Dosage: 700 MG, QD
     Route: 048
     Dates: start: 20250303, end: 20250303
  25. RITUXIMAB [Concomitant]
     Active Substance: RITUXIMAB
     Dosage: 700 MG, QD
     Route: 048
     Dates: start: 20250318, end: 20250318
  26. RITUXIMAB [Concomitant]
     Active Substance: RITUXIMAB
     Dosage: 700 MG, QD
     Route: 048
     Dates: start: 20250325, end: 20250325
  27. RITUXIMAB [Concomitant]
     Active Substance: RITUXIMAB
     Dosage: 700 MG, QD
     Route: 048
     Dates: start: 20250415, end: 20250415
  28. RITUXIMAB [Concomitant]
     Active Substance: RITUXIMAB
     Route: 048
     Dates: start: 20250220, end: 20250220
  29. PREDNISOLONE [Concomitant]
     Active Substance: PREDNISOLONE
     Dosage: 20 MG PREDNISOLON PER TABLET
     Route: 048

REACTIONS (2)
  - Agranulocytosis [Recovered/Resolved]
  - Thrombocytopenia [Recovered/Resolved]

NARRATIVE: CASE EVENT DATE: 20250408
